FAERS Safety Report 23797719 (Version 1)
Quarter: 2024Q2

REPORT INFORMATION
  Report Type: Spontaneous
  Country: DE (occurrence: DE)
  Receive Date: 20240430
  Receipt Date: 20240430
  Transmission Date: 20240716
  Serious: Yes (Other)
  Sender: FDA-Public Use
  Company Number: None

PATIENT
  Age: 55 Year
  Sex: Female

DRUGS (4)
  1. BUPROPION HYDROCHLORIDE [Suspect]
     Active Substance: BUPROPION HYDROCHLORIDE
     Indication: Depression
     Dates: start: 20210527, end: 20210602
  2. RAMIPRIL [Concomitant]
     Active Substance: RAMIPRIL
     Dosage: FOR YEARS UNTIL FURTHER NOTICE
  3. ATORVASTATIN [Concomitant]
     Active Substance: ATORVASTATIN
     Indication: Drug therapy
     Dosage: FOR YEARS UNTIL FURTHER NOTICE
  4. QUETIAPINE [Concomitant]
     Active Substance: QUETIAPINE
     Dosage: FOR MONTHS UNTIL FURTHER NOTICE

REACTIONS (10)
  - Loss of personal independence in daily activities [Recovered/Resolved]
  - Thinking abnormal [Recovered/Resolved]
  - Dizziness [Recovered/Resolved]
  - Dizziness postural [Recovered/Resolved]
  - Restlessness [Recovered/Resolved]
  - Hyperacusis [Recovered/Resolved]
  - Tremor [Recovered/Resolved]
  - Fatigue [Recovered/Resolved]
  - Nausea [Recovered/Resolved]
  - Vomiting [Recovered/Resolved]

NARRATIVE: CASE EVENT DATE: 20210527
